FAERS Safety Report 5014947-9 (Version None)
Quarter: 2006Q2

REPORT INFORMATION
  Report Type: 
  Country: None (occurrence: None)
  Receive Date: 20060425
  Receipt Date: 20060220
  Transmission Date: 20061013
  Serious: No
  Sender: FDA-Public Use
  Company Number: 222795

PATIENT
  Age: 51 Year
  Sex: Female
  Weight: 54 kg

DRUGS (8)
  1. XOLAIR [Suspect]
     Dosage: 150 MG, Q4W, SUBCUTANEOUS
     Route: 058
     Dates: start: 20060206
  2. FLOVENT [Concomitant]
  3. FORADIL [Concomitant]
  4. FENTANYL PATCH (FENTANYL CITRATE) [Concomitant]
  5. NASONEX [Concomitant]
  6. TRAZODONE HCL [Concomitant]
  7. CELEXA [Concomitant]
  8. ATIVAN [Concomitant]

REACTIONS (2)
  - PRURITUS [None]
  - RASH [None]
